FAERS Safety Report 7170516-6 (Version None)
Quarter: 2010Q4

REPORT INFORMATION
  Report Type: 
  Country: None (occurrence: None)
  Receive Date: 20101123
  Receipt Date: 20100917
  Transmission Date: 20110411
  Serious: No
  Sender: FDA-Public Use
  Company Number: 018997

PATIENT
  Sex: Female
  Weight: 91.2 kg

DRUGS (5)
  1. CIMZIA [Suspect]
     Indication: CROHN'S DISEASE
     Dosage: 2 SHOTS MONTHLY SUBCUTANEOUS
     Route: 058
     Dates: start: 20100715
  2. SYNTHROID [Concomitant]
  3. OGEN [Concomitant]
  4. VYTORN [Concomitant]
  5. NEURONTIN [Concomitant]

REACTIONS (4)
  - ABDOMINAL PAIN [None]
  - ABDOMINAL PAIN UPPER [None]
  - DEFAECATION URGENCY [None]
  - HYPERHIDROSIS [None]
